FAERS Safety Report 5491565-X (Version None)
Quarter: 2007Q4

REPORT INFORMATION
  Report Type: 
  Country: None (occurrence: None)
  Receive Date: 20071018
  Receipt Date: 20071018
  Transmission Date: 20080405
  Serious: Yes (Hospitalization)
  Sender: FDA-Public Use
  Company Number: None

PATIENT
  Age: 86 Year
  Sex: Female
  Weight: 46.3 kg

DRUGS (9)
  1. DIAZEPAM [Suspect]
     Indication: INSOMNIA
     Dosage: 2.5-5MG PO QHS
     Route: 048
  2. ATORVASTATIN [Concomitant]
  3. ASPIRIN [Concomitant]
  4. FOLIC ACID [Concomitant]
  5. FUROSEMIDE [Concomitant]
  6. DILTIAZEM [Concomitant]
  7. DIGOXIN [Concomitant]
  8. WARFARIN SODIUM [Concomitant]
  9. SERTRALINE [Concomitant]

REACTIONS (2)
  - FALL [None]
  - RIB FRACTURE [None]
